FAERS Safety Report 20656733 (Version 4)
Quarter: 2023Q2

REPORT INFORMATION
  Report Type: Report from Study
  Country: BR (occurrence: BR)
  Receive Date: 20220331
  Receipt Date: 20230404
  Transmission Date: 20230721
  Serious: Yes (Other)
  Sender: FDA-Public Use
  Company Number: BR-JNJFOC-20220351508

PATIENT
  Age: 66 Year
  Sex: Female
  Weight: 78 kg

DRUGS (5)
  1. REMICADE [Suspect]
     Active Substance: INFLIXIMAB
     Indication: Crohn^s disease
     Route: 041
     Dates: start: 20180714
  2. REMICADE [Suspect]
     Active Substance: INFLIXIMAB
     Dosage: 4 DOSES
     Route: 041
     Dates: start: 2022
  3. INFLIXIMAB [Suspect]
     Active Substance: INFLIXIMAB
     Indication: Crohn^s disease
     Route: 041
     Dates: start: 20180714
  4. SULFASALAZINE [Suspect]
     Active Substance: SULFASALAZINE
     Indication: Rheumatoid arthritis
     Route: 065
  5. ARCOXIA [Suspect]
     Active Substance: ETORICOXIB
     Indication: Rheumatoid arthritis
     Route: 065

REACTIONS (10)
  - Metabolic surgery [Unknown]
  - Ankle fracture [Unknown]
  - Fall [Unknown]
  - Chondropathy [Unknown]
  - Rheumatoid arthritis [Unknown]
  - COVID-19 [Not Recovered/Not Resolved]
  - Plantar fasciitis [Unknown]
  - Hypokinesia [Unknown]
  - Gastritis [Unknown]
  - Diarrhoea [Unknown]

NARRATIVE: CASE EVENT DATE: 20210101
